FAERS Safety Report 5820564-0 (Version None)
Quarter: 2008Q3

REPORT INFORMATION
  Report Type: 
  Country: None (occurrence: None)
  Receive Date: 20080724
  Receipt Date: 20071102
  Transmission Date: 20090109
  Serious: No
  Sender: FDA-Public Use
  Company Number: A0691258A

PATIENT
  Age: 64 Year
  Sex: Male

DRUGS (7)
  1. AVANDIA [Suspect]
     Route: 048
     Dates: start: 19990101, end: 20070801
  2. OXYCODONE HCL [Concomitant]
  3. LIPITOR [Concomitant]
  4. FLOMAX [Concomitant]
  5. NIASPAN [Concomitant]
  6. VALIUM [Concomitant]
  7. METFORMIN [Concomitant]

REACTIONS (3)
  - OEDEMA PERIPHERAL [None]
  - SKIN ULCER [None]
  - WEIGHT DECREASED [None]
